FAERS Safety Report 16190533 (Version 2)
Quarter: 2019Q3

REPORT INFORMATION
  Report Type: Spontaneous
  Country: MM (occurrence: MM)
  Receive Date: 20190412
  Receipt Date: 20190712
  Transmission Date: 20191004
  Serious: Yes (Hospitalization, Other)
  Sender: FDA-Public Use
  Company Number: MM-PFIZER INC-2019151866

PATIENT
  Sex: Male
  Weight: 37.01 kg

DRUGS (19)
  1. LINEZOLID. [Suspect]
     Active Substance: LINEZOLID
     Dosage: 300 MG, DAILY
     Route: 048
     Dates: start: 20190508, end: 20190612
  2. BEDAQUILINE [Suspect]
     Active Substance: BEDAQUILINE
     Dosage: 400 MG, 1X/DAY
     Route: 048
     Dates: start: 20190508
  3. BEDAQUILINE [Suspect]
     Active Substance: BEDAQUILINE
     Indication: TUBERCULOSIS
     Dosage: 400 MG, 1X/DAY
     Dates: start: 20190222, end: 20190312
  4. BEDAQUILINE [Suspect]
     Active Substance: BEDAQUILINE
     Dosage: 400 MG, DAILY
     Route: 048
     Dates: start: 20190508
  5. LEVOFLOXACIN. [Suspect]
     Active Substance: LEVOFLOXACIN
     Dosage: 1000 MG, 1X/DAY
     Route: 048
     Dates: start: 20190508
  6. DELAMANID [Suspect]
     Active Substance: DELAMANID
     Dosage: 200 MG, DAILY
     Route: 048
     Dates: start: 20190508
  7. CLOFAZIMINE [Suspect]
     Active Substance: CLOFAZIMINE
     Indication: TUBERCULOSIS
     Dosage: 200 MG, 1X/DAY
     Dates: start: 20190222, end: 20190312
  8. CYCLOSERINE. [Suspect]
     Active Substance: CYCLOSERINE
     Dosage: 500 MG, 1X/DAY
     Route: 048
     Dates: start: 20190508
  9. CYCLOSERINE. [Suspect]
     Active Substance: CYCLOSERINE
     Indication: TUBERCULOSIS
     Dosage: 500 MG, DAILY
     Route: 048
     Dates: start: 20190508
  10. PAS [Suspect]
     Active Substance: AMINOSALICYLIC ACID
     Indication: TUBERCULOSIS
     Dosage: 4 G, 2X/DAY
     Dates: start: 20190222
  11. PYRAZINAMIDE. [Suspect]
     Active Substance: PYRAZINAMIDE
     Indication: TUBERCULOSIS
     Dosage: 1250 MG, 1X/DAY
     Dates: start: 20190222
  12. LEVOFLOXACIN. [Suspect]
     Active Substance: LEVOFLOXACIN
     Indication: TUBERCULOSIS
     Dosage: 1000 MG, DAILY
     Route: 048
     Dates: start: 20190508
  13. LINEZOLID. [Suspect]
     Active Substance: LINEZOLID
     Indication: TUBERCULOSIS
     Dosage: 600 MG, 1X/DAY
     Dates: start: 20190222
  14. DELAMANID [Suspect]
     Active Substance: DELAMANID
     Indication: TUBERCULOSIS
     Dosage: 100 MG, 2X/DAY
     Dates: start: 20190222, end: 20190312
  15. AMOXCLAV [AMOXICILLIN;CLAVULANIC ACID] [Suspect]
     Active Substance: AMOXICILLIN\CLAVULANIC ACID
     Indication: TUBERCULOSIS
     Dosage: 1250 MG, (6 DAYS/WEEK)
     Route: 048
     Dates: start: 20190508
  16. PYRIDOXINE [Concomitant]
     Active Substance: PYRIDOXINE
     Dosage: UNK
     Dates: start: 20190508
  17. IMIPENEM / CILASTATINA [Suspect]
     Active Substance: CILASTATIN SODIUM\IMIPENEM
     Indication: TUBERCULOSIS
     Dosage: 1 G, CYCLIC (6 DAYS/WEEK)
     Route: 042
     Dates: start: 20190508
  18. LINEZOLID. [Suspect]
     Active Substance: LINEZOLID
     Dosage: 300 MG, 1X/DAY
     Route: 048
     Dates: start: 20190508, end: 20190612
  19. DELAMANID [Suspect]
     Active Substance: DELAMANID
     Dosage: 200 MG, 1X/DAY
     Route: 048
     Dates: start: 20190508

REACTIONS (11)
  - Hepatitis [Unknown]
  - Nephritis [Unknown]
  - Leukopenia [Not Recovered/Not Resolved]
  - Mouth ulceration [Unknown]
  - Platelet count decreased [Unknown]
  - Hypokalaemia [Unknown]
  - Oropharyngeal plaque [Unknown]
  - Blood calcium decreased [Unknown]
  - Anaemia [Unknown]
  - Electrocardiogram QT prolonged [Unknown]
  - Inflammatory bowel disease [Unknown]

NARRATIVE: CASE EVENT DATE: 2019
